FAERS Safety Report 20513300 (Version 1)
Quarter: 2022Q1

REPORT INFORMATION
  Report Type: Spontaneous
  Country: US (occurrence: None)
  Receive Date: 20220224
  Receipt Date: 20220224
  Transmission Date: 20220423
  Serious: Yes (Hospitalization)
  Sender: FDA-Public Use
  Company Number: None

PATIENT
  Age: 88 Year
  Sex: Female

DRUGS (1)
  1. CAPECITABINE [Suspect]
     Active Substance: CAPECITABINE
     Dosage: 1000 MG DAILY ORAL
     Route: 048
     Dates: start: 201904

REACTIONS (4)
  - Palmar-plantar erythrodysaesthesia syndrome [None]
  - Dry eye [None]
  - Blood potassium decreased [None]
  - Transient ischaemic attack [None]

NARRATIVE: CASE EVENT DATE: 20220201
